FAERS Safety Report 9153510 (Version 2)
Quarter: 2013Q2

REPORT INFORMATION
  Report Type: Spontaneous
  Country: US (occurrence: US)
  Receive Date: 20130311
  Receipt Date: 20130402
  Transmission Date: 20140414
  Serious: Yes (Hospitalization)
  Sender: FDA-Public Use
  Company Number: US-BAYER-2013-028362

PATIENT
  Age: 34 Year
  Sex: Female
  Weight: 98.87 kg

DRUGS (26)
  1. YASMIN [Suspect]
     Indication: ACNE
  2. YAZ [Suspect]
     Indication: ACNE
  3. OCELLA [Suspect]
     Indication: ACNE
  4. HYDROCODONE/ACETAMINOPHEN [Concomitant]
     Dosage: 5 MG/500 MG ONE Q 6 H (INTERPRETED AS HOURS) PRN
  5. ERYTHROCIN [Concomitant]
     Dosage: 500 MG, BID
     Dates: start: 20070105
  6. INDERAL [Concomitant]
     Indication: PALPITATIONS
     Dosage: 200 MG, TID
     Dates: start: 20070105
  7. LEVOXYL [Concomitant]
     Dosage: 0.1 MG, DAILY
     Dates: start: 20070105
  8. ALLEGRA [Concomitant]
     Dosage: 180 MG, DAILY
     Dates: start: 20070105
  9. SINGULAIR [Concomitant]
     Dosage: 40 MG, DAILY
  10. MVI [Concomitant]
     Dosage: ONE DAILY
     Dates: start: 20070105
  11. PREDNISONE [Concomitant]
     Dosage: 5 MG, DAILY
     Dates: start: 20070105
  12. METHOTREXATE [Concomitant]
     Dosage: 20 MG, EVERY FRIDAY
     Dates: start: 20070105
  13. EDECRIN [Concomitant]
     Indication: DRUG HYPERSENSITIVITY
     Dosage: 50 MG, DAILY
     Dates: start: 20070105
  14. PLAQUENIL [Concomitant]
     Dosage: 200 MG, BID
     Dates: start: 20070105
  15. CYMBALTA [Concomitant]
     Dosage: 60 MG, DAILY
     Dates: start: 20070105
  16. DESYREL [Concomitant]
     Dosage: 150 MG, Q HS
     Dates: start: 20070105
  17. LODINE [Concomitant]
     Dosage: 500 MG, BID
     Dates: start: 20070105
  18. NEXIUM [Concomitant]
     Dosage: 40 MG, BID
     Dates: start: 20070105
  19. CALCIUM CARBONATE [Concomitant]
     Dosage: 500 MG, BID
  20. ZYRTEC [Concomitant]
     Dosage: 10 MG, A DAY
  21. FOLATE SODIUM [Concomitant]
     Dosage: 1 MG, Q (INTERPRETED AS EVERY) DAY
  22. MAGNESIUM OXIDE [Concomitant]
     Dosage: 200 MG, BID
  23. MIDRIN [Concomitant]
     Dosage: 65-325 UNK, PRN
  24. FLEXERIL [Concomitant]
     Dosage: 10 MG, TID PRN
  25. ULTRAM [Concomitant]
     Dosage: 50 MG, PRN
  26. B-D ALLERGY [Concomitant]
     Dosage: 1 ML, UNK

REACTIONS (5)
  - Pulmonary embolism [Recovered/Resolved]
  - Deep vein thrombosis [Recovered/Resolved]
  - Injury [None]
  - Pain [None]
  - Pain [None]
